FAERS Safety Report 11505538 (Version 1)
Quarter: 2015Q3

REPORT INFORMATION
  Report Type: Spontaneous
  Country: US (occurrence: US)
  Receive Date: 20150915
  Receipt Date: 20150915
  Transmission Date: 20151125
  Serious: No
  Sender: FDA-Public Use
  Company Number: US-ROCHE-800704

PATIENT
  Sex: Female

DRUGS (2)
  1. PEGASYS [Suspect]
     Active Substance: PEGINTERFERON ALFA-2A
     Indication: CHRONIC HEPATITIS C
     Route: 058
  2. COPEGUS [Suspect]
     Active Substance: RIBAVIRIN
     Indication: CHRONIC HEPATITIS C
     Dosage: 48 WEEKS LENGTH THERAPY
     Route: 048

REACTIONS (5)
  - Irritability [Unknown]
  - Memory impairment [Unknown]
  - Rash erythematous [Unknown]
  - Alopecia [Unknown]
  - Fatigue [Unknown]
